FAERS Safety Report 9891596 (Version 1)
Quarter: 2014Q1

REPORT INFORMATION
  Report Type: Spontaneous
  Country: US (occurrence: None)
  Receive Date: 20140210
  Receipt Date: 20140210
  Transmission Date: 20141002
  Serious: Yes (Hospitalization)
  Sender: FDA-Public Use
  Company Number: IPC201401-000070

PATIENT
  Age: 84 Year
  Sex: Female

DRUGS (9)
  1. ALLOPURINOL [Suspect]
     Dosage: DAY
  2. HYDRALAZINE [Suspect]
  3. CLOPIDOGREL [Concomitant]
  4. AMLODIPINE [Concomitant]
  5. METOPROLOL [Concomitant]
  6. ACETAMINOPHEN [Concomitant]
  7. FERROUS SULFATE [Concomitant]
  8. VITAMIN D3 SUPPLEMENT [Concomitant]
  9. PANTOPRAZOLE [Concomitant]

REACTIONS (15)
  - Drug reaction with eosinophilia and systemic symptoms [None]
  - Myocardial infarction [None]
  - Vomiting [None]
  - Diarrhoea [None]
  - Abdominal pain [None]
  - Oedema [None]
  - Oedema peripheral [None]
  - Blood uric acid increased [None]
  - Lipase increased [None]
  - Urine abnormality [None]
  - Pyuria [None]
  - Pseudomonas test positive [None]
  - Clostridium test positive [None]
  - Retroperitoneal haematoma [None]
  - Anaemia [None]
